FAERS Safety Report 4679509-1 (Version None)
Quarter: 2005Q2

REPORT INFORMATION
  Report Type: 
  Country: None (occurrence: None)
  Receive Date: 20050311
  Receipt Date: 20050311
  Transmission Date: 20051028
  Serious: Yes (Other)
  Sender: FDA-Public Use
  Company Number: None

PATIENT
  Age: 51 Year
  Sex: Male

DRUGS (2)
  1. FUROSEMIDE [Suspect]
     Indication: CARDIAC FAILURE CONGESTIVE
     Dosage: 2 PO QID
     Route: 048
     Dates: start: 20041001
  2. FUROSEMIDE [Suspect]
     Indication: OEDEMA
     Dosage: 2 PO QID
     Route: 048
     Dates: start: 20041001

REACTIONS (5)
  - CARDIAC FAILURE CONGESTIVE [None]
  - DRUG INEFFECTIVE [None]
  - FLUID RETENTION [None]
  - OEDEMA [None]
  - PHARMACEUTICAL PRODUCT COMPLAINT [None]
